FAERS Safety Report 12585103 (Version 1)
Quarter: 2016Q3

REPORT INFORMATION
  Report Type: Spontaneous
  Country: US (occurrence: US)
  Receive Date: 20160723
  Receipt Date: 20160723
  Transmission Date: 20161109
  Serious: Yes (Hospitalization)
  Sender: FDA-Public Use
  Company Number: US-ACCORD-042599

PATIENT
  Age: 67 Year
  Sex: Female
  Weight: 54.2 kg

DRUGS (5)
  1. DIAZEPAM. [Concomitant]
     Active Substance: DIAZEPAM
  2. ESCITALOPRAM [Suspect]
     Active Substance: ESCITALOPRAM OXALATE
     Indication: DEPRESSION
     Dosage: IN MAY-2015, HER PSYCHIATRIST RESTARTED ANTIDEPRESSANT TREATMENT WITH ESCITALOPRAM 10 MG FOR 5 DAYS
     Dates: start: 201505
  3. ZOLPIDEM [Concomitant]
     Active Substance: ZOLPIDEM\ZOLPIDEM TARTRATE
  4. FEXOFENADINE/FEXOFENADINE HYDROCHLORIDE [Concomitant]
  5. LORAZEPAM. [Concomitant]
     Active Substance: LORAZEPAM

REACTIONS (1)
  - Autoimmune hepatitis [Recovered/Resolved]
